FAERS Safety Report 23296794 (Version 1)
Quarter: 2023Q4

REPORT INFORMATION
  Report Type: Spontaneous
  Country: US (occurrence: US)
  Receive Date: 20231214
  Receipt Date: 20231214
  Transmission Date: 20240110
  Serious: No
  Sender: FDA-Public Use
  Company Number: US-REATA PHARMACEUTICALS INC.-2023USRTAOMA000415

PATIENT

DRUGS (2)
  1. SKYCLARYS [Suspect]
     Active Substance: OMAVELOXOLONE
     Indication: Friedreich^s ataxia
     Dosage: 150 MILLIGRAM, BY MOUTH ONCE DAILY
     Route: 048
     Dates: start: 20230720, end: 20230924
  2. SKYCLARYS [Suspect]
     Active Substance: OMAVELOXOLONE
     Dosage: 150 MILLIGRAM, BY MOUTH ONCE DAILY (2 CAPSULES)
     Route: 048
     Dates: start: 2023

REACTIONS (2)
  - Myalgia [None]
  - Incorrect dose administered [Unknown]

NARRATIVE: CASE EVENT DATE: 20230101
